FAERS Safety Report 17460155 (Version 5)
Quarter: 2021Q1

REPORT INFORMATION
  Report Type: Spontaneous
  Country: US (occurrence: US)
  Receive Date: 20200226
  Receipt Date: 20210218
  Transmission Date: 20210419
  Serious: Yes (Other)
  Sender: FDA-Public Use
  Company Number: US-PFIZER INC-2020082938

PATIENT
  Age: 45 Year
  Sex: Female
  Weight: 158.8 kg

DRUGS (3)
  1. FLECTOR [Suspect]
     Active Substance: DICLOFENAC EPOLAMINE
     Indication: CHONDROMALACIA
  2. FLECTOR [Suspect]
     Active Substance: DICLOFENAC EPOLAMINE
     Indication: ARTHRALGIA
  3. FLECTOR [Suspect]
     Active Substance: DICLOFENAC EPOLAMINE
     Indication: ARTHRITIS
     Dosage: UNK, 2X/DAY [1.3%; APPLY ONCE EVERY TWELVE HOURS]
     Dates: start: 2006

REACTIONS (8)
  - Irritability [Unknown]
  - Gait disturbance [Unknown]
  - Body mass index increased [Unknown]
  - Frustration tolerance decreased [Unknown]
  - Lymphoma [Unknown]
  - Product use in unapproved indication [Unknown]
  - Off label use [Unknown]
  - Drug dependence [Unknown]

NARRATIVE: CASE EVENT DATE: 2006
